FAERS Safety Report 12667261 (Version 1)
Quarter: 2016Q3

REPORT INFORMATION
  Report Type: Spontaneous
  Country: US (occurrence: None)
  Receive Date: 20160818
  Receipt Date: 20160818
  Transmission Date: 20161109
  Serious: No
  Sender: FDA-Public Use
  Company Number: None

PATIENT
  Age: 75 Year
  Sex: Female
  Weight: 63.5 kg

DRUGS (16)
  1. VALIUM [Concomitant]
     Active Substance: DIAZEPAM
  2. ULTRAM [Concomitant]
     Active Substance: TRAMADOL HYDROCHLORIDE
  3. CELECOXIB, 200 MG APOTEX [Suspect]
     Active Substance: CELECOXIB
     Indication: FIBROMYALGIA
     Dosage: 1 CAPSULE ONCE  A DAY TAKEN BY MOUTH
     Route: 048
     Dates: start: 20160610, end: 20160624
  4. CELECOXIB, 200 MG APOTEX [Suspect]
     Active Substance: CELECOXIB
     Indication: ARTHRITIS
     Dosage: 1 CAPSULE ONCE  A DAY TAKEN BY MOUTH
     Route: 048
     Dates: start: 20160610, end: 20160624
  5. ATELVIA [Concomitant]
     Active Substance: RISEDRONATE SODIUM
  6. VERAPAMIL [Concomitant]
     Active Substance: VERAPAMIL HYDROCHLORIDE
  7. VITAMIN B12 [Concomitant]
     Active Substance: CYANOCOBALAMIN
  8. LANSOPRASOL [Concomitant]
  9. GLUCOSAMINE [Concomitant]
     Active Substance: GLUCOSAMINE
  10. CITRICAL +D [Concomitant]
  11. MULTI VITAMIN [Concomitant]
     Active Substance: VITAMINS
  12. LUBRICANT EYE DROPS [Concomitant]
     Active Substance: POLYETHYLENE GLYCOL 400\PROPYLENE GLYCOL
  13. XARELTO [Concomitant]
     Active Substance: RIVAROXABAN
  14. CELEBREX [Concomitant]
     Active Substance: CELECOXIB
  15. LUTEIN [Concomitant]
     Active Substance: LUTEIN
  16. MAGNESIUM [Concomitant]
     Active Substance: MAGNESIUM

REACTIONS (6)
  - Diarrhoea [None]
  - Abdominal pain upper [None]
  - Reaction to drug excipients [None]
  - Dehydration [None]
  - Product substitution issue [None]
  - Tremor [None]

NARRATIVE: CASE EVENT DATE: 20160610
